FAERS Safety Report 23363470 (Version 2)
Quarter: 2024Q1

REPORT INFORMATION
  Report Type: Spontaneous
  Country: FR (occurrence: FR)
  Receive Date: 20240103
  Receipt Date: 20240118
  Transmission Date: 20240410
  Serious: Yes (Death, Hospitalization, Other)
  Sender: FDA-Public Use
  Company Number: FR-AFSSAPS-CN2023001117

PATIENT
  Age: 81 Year
  Sex: Female
  Weight: 69 kg

DRUGS (4)
  1. KEYTRUDA [Suspect]
     Active Substance: PEMBROLIZUMAB
     Indication: Triple negative breast cancer
     Dosage: 200 MG ON D1, D8 AND D15
     Route: 042
     Dates: start: 20230222, end: 20230308
  2. KEYTRUDA [Suspect]
     Active Substance: PEMBROLIZUMAB
     Dosage: 200 MG ON D1
     Route: 042
     Dates: start: 20230519, end: 20230519
  3. KEYTRUDA [Suspect]
     Active Substance: PEMBROLIZUMAB
     Dosage: 200 MG ON D1 (D8 AND D15 CANCELED)
     Route: 042
     Dates: start: 20230427, end: 20230427
  4. KEYTRUDA [Suspect]
     Active Substance: PEMBROLIZUMAB
     Dosage: 200 MG ON D1
     Route: 042
     Dates: start: 20230609, end: 20230609

REACTIONS (2)
  - Lung opacity [Fatal]
  - Hepatitis cholestatic [Fatal]

NARRATIVE: CASE EVENT DATE: 20230601
